FAERS Safety Report 8219577-3 (Version None)
Quarter: 2012Q1

REPORT INFORMATION
  Report Type: 
  Country: None (occurrence: None)
  Receive Date: 20120319
  Receipt Date: 20120309
  Transmission Date: 20120608
  Serious: Yes (Death)
  Sender: FDA-Public Use
  Company Number: CA-JNJFOC-20060502265

PATIENT
  Sex: Male

DRUGS (2)
  1. TYLENOL W/ CODEINE NO. 3 [Suspect]
     Indication: EXPOSURE DURING BREAST FEEDING
     Route: 063
  2. TYLENOL W/ CODEINE NO. 3 [Suspect]
     Dosage: REDUCED TO HALF THAT DOSE FROM DAY 2, CONTINUED FOR 2 WEEKS
     Route: 063

REACTIONS (2)
  - TOXICITY TO VARIOUS AGENTS [None]
  - EXPOSURE DURING BREAST FEEDING [None]
